FAERS Safety Report 8251297-1 (Version None)
Quarter: 2012Q2

REPORT INFORMATION
  Report Type: 
  Country: None (occurrence: None)
  Receive Date: 20120402
  Receipt Date: 20120328
  Transmission Date: 20120825
  Serious: Yes (Other)
  Sender: FDA-Public Use
  Company Number: US-BAYER-2012-030274

PATIENT
  Age: 31 Year
  Sex: Female

DRUGS (2)
  1. DROSPIRENONE AND ETHINYL ESTRADIOL [Suspect]
     Dosage: UNK
     Route: 048
     Dates: start: 20080801, end: 20090401
  2. YAZ [Suspect]
     Dosage: UNK
     Route: 048
     Dates: start: 20080801, end: 20090401

REACTIONS (1)
  - DEEP VEIN THROMBOSIS [None]
